FAERS Safety Report 6550629 (Version 4)
Quarter: 2013Q2

REPORT INFORMATION
  Report Type: Spontaneous
  Country: US (occurrence: US)
  Receive Date: 20080212
  Receipt Date: 20130528
  Transmission Date: 20140414
  Serious: Yes (Hospitalization)
  Sender: FDA-Public Use
  Company Number: US-BAYER-200813040NA

PATIENT
  Age: 35 Year
  Sex: Female
  Weight: 51 kg

DRUGS (2)
  1. YAZ [Suspect]
     Indication: ACNE
     Dosage: 1 DF (DAILY DOSE), QD, ORAL
     Route: 048
     Dates: start: 20071111, end: 20071125
  2. YAZ [Suspect]
     Indication: PREMENSTRUAL DYSPHORIC DISORDER

REACTIONS (4)
  - Transient ischaemic attack [Recovered/Resolved with Sequelae]
  - Blood potassium decreased [Recovered/Resolved]
  - Memory impairment [Recovered/Resolved with Sequelae]
  - Eyelid function disorder [Recovered/Resolved with Sequelae]
